FAERS Safety Report 10663981 (Version 1)
Quarter: 2014Q4

REPORT INFORMATION
  Report Type: Spontaneous
  Country: US (occurrence: None)
  Receive Date: 20141208
  Receipt Date: 20141208
  Transmission Date: 20150529
  Serious: No
  Sender: FDA-Public Use
  Company Number: 2014TUS008245

PATIENT
  Age: 23 Year
  Sex: Female
  Weight: 56.7 kg

DRUGS (3)
  1. ABILIFY [Suspect]
     Active Substance: ARIPIPRAZOLE
  2. VYVANSE (LISEDEXAMFETAMINE MESILATE) [Concomitant]
  3. BRINTELLIX [Suspect]
     Active Substance: VORTIOXETINE HYDROBROMIDE
     Indication: MAJOR DEPRESSION
     Route: 048
     Dates: start: 20140225

REACTIONS (2)
  - Somnolence [None]
  - Fatigue [None]

NARRATIVE: CASE EVENT DATE: 201402
